FAERS Safety Report 18190125 (Version 1)
Quarter: 2020Q3

REPORT INFORMATION
  Report Type: Spontaneous
  Country: IT (occurrence: IT)
  Receive Date: 20200825
  Receipt Date: 20200825
  Transmission Date: 20201103
  Serious: Yes (Other)
  Sender: FDA-Public Use
  Company Number: IT-LUPIN PHARMACEUTICALS INC.-2020-04967

PATIENT
  Age: 83 Year
  Sex: Female

DRUGS (2)
  1. BETAMETHASONE. [Suspect]
     Active Substance: BETAMETHASONE
     Indication: COVID-19
     Dosage: 8 MILLIGRAM, BID
     Route: 065
     Dates: start: 202003
  2. HEPARIN [Concomitant]
     Active Substance: HEPARIN SODIUM
     Indication: SUPPORTIVE CARE
     Dosage: LOW DOSE HEPARIN
     Route: 065
     Dates: start: 202003

REACTIONS (1)
  - Off label use [Unknown]
